FAERS Safety Report 5991401-9 (Version None)
Quarter: 2008Q4

REPORT INFORMATION
  Report Type: 
  Country: None (occurrence: None)
  Receive Date: 20081202
  Receipt Date: 20080114
  Transmission Date: 20090506
  Serious: Yes (Hospitalization, Disabling)
  Sender: FDA-Public Use
  Company Number: WAES 0801USA02877

PATIENT
  Age: 44 Year
  Sex: Female
  Weight: 56.246 kg

DRUGS (12)
  1. FOSAMAX [Suspect]
     Indication: OSTEOPENIA
     Dosage: 70 MG/WKY/PO
     Route: 048
     Dates: start: 20020101, end: 20060101
  2. DILANTIN [Concomitant]
  3. LAMICTAL [Concomitant]
  4. REBIF [Concomitant]
  5. SEROQUEL [Concomitant]
  6. VICODIN [Concomitant]
  7. ZANAFLEX [Concomitant]
  8. [THERAPY UNSPECIFIED] [Concomitant]
  9. AMITRIPTYLINE HYDROCHLORIDE [Concomitant]
  10. BACLOFEN [Concomitant]
  11. GABAPENTIN [Concomitant]
  12. HORMONAL CONTRACEPTIVES [Concomitant]

REACTIONS (2)
  - BACK PAIN [None]
  - MYALGIA [None]
